FAERS Safety Report 7300450-X (Version None)
Quarter: 2011Q1

REPORT INFORMATION
  Report Type: 
  Country: None (occurrence: None)
  Receive Date: 20110217
  Receipt Date: 20110202
  Transmission Date: 20110831
  Serious: Yes (Hospitalization)
  Sender: FDA-Public Use
  Company Number: PHHY2010FR79969

PATIENT
  Sex: Female

DRUGS (3)
  1. TASIGNA [Suspect]
     Indication: CHRONIC MYELOID LEUKAEMIA
     Dosage: 400 MG, BID
     Route: 048
     Dates: start: 20080327
  2. MODURETIC 5-50 [Concomitant]
     Indication: HYPERTENSION
     Route: 048
     Dates: start: 20030101, end: 20100312
  3. AMLOR [Concomitant]
     Indication: HYPERTENSION
     Dosage: 5 MG,DAILY

REACTIONS (7)
  - CEREBRAL HAEMORRHAGE [None]
  - EXTRASYSTOLES [None]
  - TACHYCARDIA [None]
  - LEFT VENTRICULAR HYPERTROPHY [None]
  - HYPERCHOLESTEROLAEMIA [None]
  - TRANSIENT ISCHAEMIC ATTACK [None]
  - DISORIENTATION [None]
